FAERS Safety Report 25082649 (Version 2)
Quarter: 2025Q1

REPORT INFORMATION
  Report Type: Spontaneous
  Country: US (occurrence: US)
  Receive Date: 20250317
  Receipt Date: 20250325
  Transmission Date: 20250408
  Serious: Yes (Other)
  Sender: GLAXOSMITHKLINE
  Company Number: US-GLAXOSMITHKLINE INC-US2025029217

PATIENT

DRUGS (3)
  1. TRELEGY ELLIPTA [Suspect]
     Active Substance: FLUTICASONE FUROATE\UMECLIDINIUM BROMIDE\VILANTEROL TRIFENATATE
     Indication: Asthma
     Dosage: 200 MG, QD
     Dates: start: 202001, end: 202502
  2. ALBUTEROL [Suspect]
     Active Substance: ALBUTEROL
     Indication: Product used for unknown indication
     Dosage: 90 MG, TID
     Route: 055
     Dates: start: 20250201, end: 20250210
  3. ALBUTEROL SULFATE [Suspect]
     Active Substance: ALBUTEROL SULFATE
     Indication: Asthma
     Dosage: 2.5 MG, TID

REACTIONS (5)
  - Neoplasm malignant [Not Recovered/Not Resolved]
  - Neuropathy peripheral [Unknown]
  - Nervousness [Unknown]
  - Lung disorder [Unknown]
  - Drug ineffective [Unknown]
